FAERS Safety Report 4692802-1 (Version None)
Quarter: 2005Q2

REPORT INFORMATION
  Report Type: 
  Country: None (occurrence: None)
  Receive Date: 20050617
  Receipt Date: 20050607
  Transmission Date: 20051028
  Serious: Yes (Other)
  Sender: FDA-Public Use
  Company Number: PHEH2005US06455

PATIENT
  Age: 68 Year
  Sex: Male

DRUGS (4)
  1. ZOMETA [Suspect]
     Indication: METASTASES TO BONE
     Dosage: 4 MG EVERY 3-4 WEEKS
     Dates: start: 20050103, end: 20050523
  2. TAXOTERE [Concomitant]
     Dates: start: 20050523
  3. PREDNISONE TAB [Concomitant]
     Dosage: 5 MG, BID
  4. NEULASTA [Concomitant]

REACTIONS (2)
  - ASEPTIC NECROSIS BONE [None]
  - TOOTH EXTRACTION [None]
